FAERS Safety Report 11317944 (Version 1)
Quarter: 2015Q3

REPORT INFORMATION
  Report Type: Spontaneous
  Country: FR (occurrence: FR)
  Receive Date: 20150728
  Receipt Date: 20150728
  Transmission Date: 20151125
  Serious: Yes (Life-Threatening, Hospitalization, Other)
  Sender: FDA-Public Use
  Company Number: FR-ELI_LILLY_AND_COMPANY-FR201507008164

PATIENT
  Age: 48 Year
  Sex: Male

DRUGS (2)
  1. ALIMTA [Suspect]
     Active Substance: PEMETREXED DISODIUM
     Indication: LUNG ADENOCARCINOMA METASTATIC
     Dosage: UNK, UNKNOWN
     Route: 042
     Dates: start: 20140922, end: 20141013
  2. AVASTIN [Suspect]
     Active Substance: BEVACIZUMAB
     Indication: LUNG ADENOCARCINOMA METASTATIC
     Dosage: UNK, UNKNOWN
     Route: 065
     Dates: start: 20140922, end: 20141013

REACTIONS (5)
  - Ileal perforation [Recovering/Resolving]
  - Peritonitis [Recovering/Resolving]
  - Off label use [Recovering/Resolving]
  - Septic shock [Recovering/Resolving]
  - Peritoneal abscess [Recovering/Resolving]

NARRATIVE: CASE EVENT DATE: 20141207
